FAERS Safety Report 7526100-5 (Version None)
Quarter: 2011Q2

REPORT INFORMATION
  Report Type: 
  Country: None (occurrence: None)
  Receive Date: 20110606
  Receipt Date: 20110525
  Transmission Date: 20111010
  Serious: Yes (Other)
  Sender: FDA-Public Use
  Company Number: US-MERCK-0705USA02823

PATIENT
  Age: 67 Year
  Sex: Female
  Weight: 64 kg

DRUGS (2)
  1. FOSAMAX [Suspect]
     Indication: OSTEOPOROSIS
     Route: 048
     Dates: start: 20010101, end: 20060518
  2. ESTROGENS (UNSPECIFIED) [Concomitant]
     Route: 065
     Dates: start: 19960101, end: 20011101

REACTIONS (16)
  - INNER EAR DISORDER [None]
  - EXCORIATION [None]
  - DENTAL PLAQUE [None]
  - FIBULA FRACTURE [None]
  - DEAFNESS NEUROSENSORY [None]
  - INFLAMMATION [None]
  - FALL [None]
  - MOUTH HAEMORRHAGE [None]
  - BREAST CANCER [None]
  - ARTHROPATHY [None]
  - TOOTH DEPOSIT [None]
  - SEASONAL ALLERGY [None]
  - EUSTACHIAN TUBE DYSFUNCTION [None]
  - DENTAL CARIES [None]
  - DEAFNESS [None]
  - ANKLE FRACTURE [None]
